FAERS Safety Report 23601684 (Version 1)
Quarter: 2024Q1

REPORT INFORMATION
  Report Type: Report from Study
  Country: US (occurrence: US)
  Receive Date: 20240306
  Receipt Date: 20240306
  Transmission Date: 20240410
  Serious: Yes (Death)
  Sender: FDA-Public Use
  Company Number: US-BAYER-2024A034230

PATIENT
  Age: 76 Year
  Sex: Male
  Weight: 83.447 kg

DRUGS (15)
  1. ADEMPAS [Suspect]
     Active Substance: RIOCIGUAT
     Indication: Pulmonary arterial hypertension
     Dosage: UNK
     Dates: start: 20220201
  2. ADEMPAS [Suspect]
     Active Substance: RIOCIGUAT
     Indication: Pulmonary arterial hypertension
     Dosage: 2.5 MG, TID
     Route: 048
  3. TIOTROPIUM [Concomitant]
     Active Substance: TIOTROPIUM
  4. ACETAMINOPHEN\HYDROCODONE [Concomitant]
     Active Substance: ACETAMINOPHEN\HYDROCODONE
  5. POTASSIUM CHLORIDE [Concomitant]
     Active Substance: POTASSIUM CHLORIDE
  6. EZETIMIBE [Concomitant]
     Active Substance: EZETIMIBE
  7. ALLOPURINOL [Concomitant]
     Active Substance: ALLOPURINOL
  8. BUMETANIDE [Concomitant]
     Active Substance: BUMETANIDE
  9. LYRICA [Concomitant]
     Active Substance: PREGABALIN
  10. METOLAZONE [Concomitant]
     Active Substance: METOLAZONE
  11. NOVOLOG [Concomitant]
     Active Substance: INSULIN ASPART
  12. SIMVASTATIN [Concomitant]
     Active Substance: SIMVASTATIN
  13. OXYGEN [Concomitant]
     Active Substance: OXYGEN
  14. WARFARIN SODIUM [Concomitant]
     Active Substance: WARFARIN SODIUM
  15. ROPINIROLE HYDROCHLORIDE [Concomitant]
     Active Substance: ROPINIROLE HYDROCHLORIDE

REACTIONS (1)
  - Death [Fatal]

NARRATIVE: CASE EVENT DATE: 20240227
